FAERS Safety Report 4578504-0 (Version None)
Quarter: 2005Q1

REPORT INFORMATION
  Report Type: 
  Country: None (occurrence: None)
  Receive Date: 20050204
  Receipt Date: 20050204
  Transmission Date: 20050727
  Serious: Yes (Hospitalization)
  Sender: FDA-Public Use
  Company Number: None

PATIENT
  Age: 6 Year
  Sex: Female
  Weight: 18.7 kg

DRUGS (4)
  1. REMICADE [Suspect]
     Indication: JUVENILE ARTHRITIS
     Dosage: 100MG  EVERY 5 WEEKS   INTRAVENOU
     Route: 042
     Dates: start: 20040404, end: 20050127
  2. IBUPROFEN [Concomitant]
  3. FOLIC ACID [Concomitant]
  4. METHOTREXATE [Concomitant]

REACTIONS (1)
  - PERITONSILLAR ABSCESS [None]
